FAERS Safety Report 4721779-5 (Version None)
Quarter: 2005Q3

REPORT INFORMATION
  Report Type: 
  Country: None (occurrence: None)
  Receive Date: 20050721
  Receipt Date: 20050412
  Transmission Date: 20060218
  Serious: No
  Sender: FDA-Public Use
  Company Number: US-BRISTOL-MYERS SQUIBB COMPANY-12930285

PATIENT
  Age: 68 Year
  Sex: Male

DRUGS (5)
  1. COUMADIN [Suspect]
     Indication: HEART VALVE REPLACEMENT
     Dosage: 10 MG FOUR TIMES WEEKLY, AND 15 MG THREE TIMES WEEKLY. INTERRUPTED 31-MAR-2005
     Dates: start: 19940101
  2. CAMPRAL [Interacting]
     Indication: ALCOHOLISM
     Route: 048
     Dates: start: 20050314
  3. LIPITOR [Concomitant]
  4. ATENOLOL [Concomitant]
  5. ACTONEL [Concomitant]

REACTIONS (2)
  - DRUG INTERACTION [None]
  - INTERNATIONAL NORMALISED RATIO INCREASED [None]
